FAERS Safety Report 8176555-0 (Version None)
Quarter: 2012Q1

REPORT INFORMATION
  Report Type: 
  Country: None (occurrence: None)
  Receive Date: 20120301
  Receipt Date: 20120228
  Transmission Date: 20120608
  Serious: Yes (Other)
  Sender: FDA-Public Use
  Company Number: KR-BAYER-2011-016619

PATIENT
  Age: 65 Year
  Sex: Female
  Weight: 54 kg

DRUGS (51)
  1. APETROL [Concomitant]
     Indication: DYSPEPSIA
     Dosage: 100 ML, QD
     Route: 048
     Dates: start: 20110127, end: 20110226
  2. MAGNESIUM OXIDE [Concomitant]
     Dosage: 500 MG, QD
     Route: 048
     Dates: start: 20110104, end: 20110104
  3. DUPHALAC [Concomitant]
     Indication: CONSTIPATION
     Dosage: Q2.68 ML, QD
     Route: 048
     Dates: start: 20110205, end: 20110205
  4. DUPHALAC [Concomitant]
     Dosage: 16.34 ML, QD
     Route: 048
     Dates: start: 20110209, end: 20110219
  5. BACTROBAN [Concomitant]
     Indication: INFECTION PROPHYLAXIS
     Dosage: 10 G, QD
     Route: 061
     Dates: start: 20110220
  6. CTRI LACTTOL POWDER [Concomitant]
     Dosage: 40 G, QD
     Dates: start: 20100718, end: 20100728
  7. AGIO GRANULE [Concomitant]
     Dosage: 12 G, QD
     Dates: start: 20100810, end: 20100823
  8. RINO EBASTEL [Concomitant]
     Indication: RHINITIS ALLERGIC
     Dosage: 130 ML, QD
     Route: 055
     Dates: start: 20110129, end: 20110130
  9. GASMOTIN [Concomitant]
     Indication: DYSPEPSIA
     Dosage: 5 MG, QD
     Route: 048
     Dates: start: 20110201, end: 20110203
  10. GASMOTIN [Concomitant]
     Dosage: 15 MG, QD
     Route: 048
     Dates: start: 20110206, end: 20110208
  11. DUPHALAC [Concomitant]
     Dosage: 32.68 ML, QD
     Route: 048
     Dates: start: 20110207, end: 20110208
  12. SORAFENIB (RAF KINASE INHIBITOR) [Suspect]
     Indication: THYROID CANCER METASTATIC
     Dosage: 800MG
     Route: 048
     Dates: start: 20100810, end: 20110220
  13. MAGNESIUM OXIDE [Concomitant]
     Dosage: 1500 MG, QD
     Route: 048
     Dates: start: 20110208, end: 20110208
  14. MAGNESIUM OXIDE [Concomitant]
     Dosage: 1000 MG, QD
     Route: 048
     Dates: start: 20110211, end: 20110211
  15. GASMOTIN [Concomitant]
     Dosage: 15 MG, UNK
     Dates: start: 20110306
  16. DUPHALAC [Concomitant]
     Dosage: 16.34 ML, QD
     Route: 048
     Dates: start: 20110206, end: 20110206
  17. SODIUM CHLORIDE [Concomitant]
     Dosage: 1000 ML, QD
     Route: 042
     Dates: start: 20110202
  18. SODIUM CHLORIDE [Concomitant]
     Dosage: 1000 ML, UNK
     Dates: start: 20110227, end: 20110228
  19. BACTROBAN [Concomitant]
     Indication: CYSTITIS
     Dosage: 40 MG, UNK
     Dates: start: 20110223, end: 20110223
  20. TRIAMCINOLONE ACETONIDE [Concomitant]
     Indication: MUCOSAL INFLAMMATION
     Dosage: 10 G, QD
     Route: 061
     Dates: start: 20110220
  21. ACETAMINOPHEN [Concomitant]
     Dosage: 2600 UNK, UNK
     Dates: start: 20110127, end: 20110128
  22. ACETAMINOPHEN [Concomitant]
     Dosage: 650 MG, UNK
     Dates: start: 20110208, end: 20110208
  23. KABIVEN [Concomitant]
     Indication: MEDICAL DIET
     Dosage: 1920 ML, QD
     Route: 048
     Dates: start: 20110203, end: 20110204
  24. SODIUM CHLORIDE [Concomitant]
     Dosage: 1000 ML, UNK
     Dates: start: 20110220, end: 20110223
  25. MAGNESIUM OXIDE [Concomitant]
     Indication: CONSTIPATION
     Dosage: 500 MG, QD
     Route: 048
     Dates: start: 20110131, end: 20110201
  26. METOCLOPRAMIDE HYDROCHLORIDE [Concomitant]
     Indication: DYSPEPSIA
     Dosage: 10 ML, QD
     Route: 042
     Dates: start: 20110201, end: 20110202
  27. GASMOTIN [Concomitant]
     Dosage: 20 MG, QD
     Route: 048
     Dates: start: 20110205, end: 20110205
  28. SODIUM CHLORIDE [Concomitant]
     Dosage: 1500 ML, QD
     Dates: start: 20100720, end: 20100720
  29. SODIUM CHLORIDE [Concomitant]
     Dosage: 1500 ML
     Dates: start: 20100720, end: 20100720
  30. SEPTRA [Concomitant]
     Indication: CYSTITIS
     Dosage: 1920 MG, QD
     Route: 048
     Dates: start: 20110207, end: 20110213
  31. OSSOPAN [Concomitant]
     Dosage: 1660 MG, QD
     Dates: start: 20081013
  32. PLACEBO [Suspect]
     Indication: THYROID CANCER METASTATIC
     Dosage: 800 MG, QD
     Route: 048
     Dates: end: 20100727
  33. SYNTHROID [Concomitant]
     Indication: THYROID HORMONE REPLACEMENT THERAPY
     Dosage: 0.2 MG, QD
     Route: 048
     Dates: start: 20081013
  34. TANTUM [Concomitant]
     Indication: MUCOSAL INFLAMMATION
     Dosage: 100 ML, QD (SOLUTION)
     Route: 048
     Dates: start: 20100824
  35. SODIUM CHLORIDE [Concomitant]
     Dosage: 1500 ML, QD
     Route: 042
     Dates: start: 20110220, end: 20110220
  36. MADECASSOL [Concomitant]
     Indication: PROPHYLAXIS
     Dosage: 5 G, QD
     Route: 061
     Dates: start: 20110220
  37. BIOFLOR [Concomitant]
     Indication: CONSTIPATION
     Dosage: 847.5 MG, QD
     Route: 048
     Dates: start: 20100824, end: 20110202
  38. BIOFLOR [Concomitant]
     Indication: DYSPEPSIA
     Dosage: 847.5 MG, QD
     Route: 048
     Dates: start: 20110203, end: 20110204
  39. ALLEGRA [Concomitant]
     Indication: RHINITIS ALLERGIC
     Dosage: 120 MG, QD
     Route: 048
     Dates: start: 20100824
  40. CODENAL [Concomitant]
     Indication: RHINITIS ALLERGIC
     Dosage: 180 ML, QD
     Route: 048
     Dates: start: 20110129, end: 20110129
  41. BEARSE [Concomitant]
     Indication: DYSPEPSIA
     Dosage: 243.6 MG, QD
     Route: 048
     Dates: start: 20110203, end: 20110204
  42. ALFACALCIDOL [Concomitant]
     Dosage: 1 ?G, QD
     Dates: start: 20081013
  43. BISACODYL [Concomitant]
     Dosage: 10 MG, QD
     Dates: start: 20100810, end: 20100823
  44. MAGNESIUM OXIDE [Concomitant]
     Dosage: 1000 MG, QD
     Route: 048
     Dates: start: 20110202, end: 20110203
  45. MAGNESIUM OXIDE [Concomitant]
     Dosage: 1000 MG, QD
     Route: 048
     Dates: start: 20110205, end: 20110207
  46. MAGNESIUM OXIDE [Concomitant]
     Dosage: 2250 MG, QD
     Route: 048
     Dates: start: 20110209, end: 20110210
  47. MAGNESIUM OXIDE [Concomitant]
     Dosage: 750 MG, QD
     Route: 048
     Dates: start: 20110220, end: 20110225
  48. SODIUM CHLORIDE [Concomitant]
     Indication: NUTRITIONAL SUPPORT
     Dosage: 500 ML, QD
     Route: 042
     Dates: start: 20110208, end: 20110208
  49. DEXAMETHASONE SODIUM PHOSPHATE [Concomitant]
     Indication: CYSTITIS
     Dosage: 5 MG, QD
     Route: 042
     Dates: start: 20110209, end: 20110209
  50. ACETAMINOPHEN [Concomitant]
     Indication: BACK PAIN
     Dosage: 900 MG, QD
     Dates: start: 20110125, end: 20110131
  51. ACETAMINOPHEN [Concomitant]
     Indication: PAIN
     Dosage: 1300 MG, UNK
     Dates: start: 20110126, end: 20110126

REACTIONS (14)
  - RECTAL ULCER HAEMORRHAGE [None]
  - PLEURAL EFFUSION [None]
  - METASTASES TO BONE [None]
  - ASCITES [None]
  - CYSTITIS [None]
  - HAEMORRHAGIC ANAEMIA [None]
  - NAUSEA [None]
  - COLITIS [None]
  - LYMPHOCYTE PERCENTAGE DECREASED [None]
  - RECTAL ULCER [None]
  - VOMITING [None]
  - PANCREATIC ENLARGEMENT [None]
  - MONOCYTE PERCENTAGE DECREASED [None]
  - TUMOUR PAIN [None]
